FAERS Safety Report 17662867 (Version 2)
Quarter: 2020Q2

REPORT INFORMATION
  Report Type: Spontaneous
  Country: US (occurrence: US)
  Receive Date: 20200413
  Receipt Date: 20200427
  Transmission Date: 20200713
  Serious: Yes (Hospitalization)
  Sender: FDA-Public Use
  Company Number: US-LUNDBECK-DKLU3015215

PATIENT
  Age: 9 Year
  Sex: Male
  Weight: 27 kg

DRUGS (11)
  1. SABRIL [Suspect]
     Active Substance: VIGABATRIN
     Route: 048
  2. BANZEL [Concomitant]
     Active Substance: RUFINAMIDE
     Indication: PRODUCT USED FOR UNKNOWN INDICATION
     Route: 065
  3. KEPPRA [Concomitant]
     Active Substance: LEVETIRACETAM
     Indication: SEIZURE
  4. DIASTAT [Concomitant]
     Active Substance: DIAZEPAM
     Indication: SEIZURE
     Route: 054
  5. CANNABIDIOL [Concomitant]
     Active Substance: CANNABIDIOL
     Indication: SEIZURE
     Route: 065
  6. SABRIL [Suspect]
     Active Substance: VIGABATRIN
     Route: 048
     Dates: start: 201803
  7. KLONOPIN [Concomitant]
     Active Substance: CLONAZEPAM
     Indication: SEIZURE
  8. FYCOMPA [Concomitant]
     Active Substance: PERAMPANEL
     Indication: SEIZURE
  9. FYCOMPA [Concomitant]
     Active Substance: PERAMPANEL
     Route: 048
  10. SABRIL [Suspect]
     Active Substance: VIGABATRIN
     Indication: INFANTILE SPASMS
     Route: 065
     Dates: start: 2018
  11. SABRIL [Suspect]
     Active Substance: VIGABATRIN
     Route: 048

REACTIONS (5)
  - Epilepsy [Unknown]
  - Bradycardia [Unknown]
  - Lennox-Gastaut syndrome [Unknown]
  - Status epilepticus [Unknown]
  - Oxygen saturation decreased [Unknown]
